FAERS Safety Report 9940979 (Version 2)
Quarter: 2014Q1

REPORT INFORMATION
  Report Type: Spontaneous
  Country: DE (occurrence: DE)
  Receive Date: 20140303
  Receipt Date: 20140303
  Transmission Date: 20141002
  Serious: Yes (Other)
  Sender: FDA-Public Use
  Company Number: DE-JNJFOC-20130404039

PATIENT
  Sex: Female
  Weight: 90 kg

DRUGS (9)
  1. XARELTO [Suspect]
     Indication: CEREBROVASCULAR ACCIDENT PROPHYLAXIS
     Route: 048
  2. XARELTO [Suspect]
     Indication: ATRIAL FIBRILLATION
     Route: 048
  3. BISOPROLOL [Concomitant]
     Route: 065
  4. CANDESARTAN [Concomitant]
     Route: 065
  5. ALLOPURINOL [Concomitant]
     Route: 065
  6. DYTIDE H [Concomitant]
     Route: 065
  7. ARCOXIA [Concomitant]
     Route: 065
  8. LOCOL [Concomitant]
     Route: 065
  9. CLEXANE [Concomitant]
     Route: 065

REACTIONS (2)
  - Vaginal haemorrhage [Recovered/Resolved]
  - Ischaemic stroke [Unknown]
